FAERS Safety Report 8075770-4 (Version None)
Quarter: 2012Q1

REPORT INFORMATION
  Report Type: 
  Country: None (occurrence: None)
  Receive Date: 20120127
  Receipt Date: 20120118
  Transmission Date: 20120608
  Serious: Yes (Other)
  Sender: FDA-Public Use
  Company Number: US-BAYER-2012-007529

PATIENT
  Age: 58 Year
  Sex: Female
  Weight: 63 kg

DRUGS (4)
  1. SIMVASTATIN [Concomitant]
  2. CAMPHO-PHENIQUE ANTISEPTIC COLD SORE GEL WITH DA [Suspect]
     Dosage: UNK
     Route: 047
  3. LOSARTAN POTASSIUM [Concomitant]
  4. MOTRIN [Concomitant]

REACTIONS (4)
  - CORNEAL ABRASION [None]
  - EYE IRRITATION [None]
  - EYE PAIN [None]
  - OCULAR HYPERAEMIA [None]
